FAERS Safety Report 19886340 (Version 6)
Quarter: 2024Q3

REPORT INFORMATION
  Report Type: Report from Study
  Country: US (occurrence: US)
  Receive Date: 20210928
  Receipt Date: 20240925
  Transmission Date: 20241016
  Serious: Yes (Other)
  Sender: GLAXOSMITHKLINE
  Company Number: US-GLAXOSMITHKLINE-US2021AMR201123

PATIENT
  Sex: Female

DRUGS (1)
  1. NIRAPARIB [Suspect]
     Active Substance: NIRAPARIB
     Indication: Ovarian cancer
     Dosage: 200 MG
     Dates: start: 202105

REACTIONS (16)
  - Renal impairment [Not Recovered/Not Resolved]
  - Vomiting [Not Recovered/Not Resolved]
  - Headache [Not Recovered/Not Resolved]
  - Hypertension [Recovering/Resolving]
  - Nausea [Not Recovered/Not Resolved]
  - Cough [Not Recovered/Not Resolved]
  - Pollakiuria [Not Recovered/Not Resolved]
  - Protein urine present [Not Recovered/Not Resolved]
  - Disturbance in attention [Unknown]
  - Hypersomnia [Unknown]
  - Blood pressure increased [Not Recovered/Not Resolved]
  - Fatigue [Recovering/Resolving]
  - Asthenia [Unknown]
  - Haemoglobin decreased [Unknown]
  - Red blood cell count decreased [Unknown]
  - Product dose omission issue [Unknown]
